FAERS Safety Report 7494924-9 (Version None)
Quarter: 2011Q2

REPORT INFORMATION
  Report Type: 
  Country: None (occurrence: None)
  Receive Date: 20110520
  Receipt Date: 20110509
  Transmission Date: 20111010
  Serious: Yes (Hospitalization)
  Sender: FDA-Public Use
  Company Number: FR-UCBSA-032425

PATIENT
  Sex: Male

DRUGS (7)
  1. AERIUS [Concomitant]
  2. CIMZIA [Suspect]
     Route: 058
     Dates: start: 20110221
  3. GABAPENTINE [Concomitant]
  4. LEVOTHYROXINE SODIUM [Concomitant]
  5. KESTIN [Concomitant]
  6. SPIRIVA [Concomitant]
  7. SYMBICORT [Concomitant]

REACTIONS (3)
  - NAUSEA [None]
  - SOMNOLENCE [None]
  - DIARRHOEA [None]
